FAERS Safety Report 4639269-7 (Version None)
Quarter: 2005Q2

REPORT INFORMATION
  Report Type: 
  Country: None (occurrence: None)
  Receive Date: 20050418
  Receipt Date: 20050407
  Transmission Date: 20051028
  Serious: No
  Sender: FDA-Public Use
  Company Number: 05P-167-0296849-00

PATIENT
  Sex: Female

DRUGS (4)
  1. DEPAKOTE [Suspect]
     Indication: ANGER
     Dosage: 250 MG, 2 IN 1 D
     Dates: end: 20050301
  2. DEPAKOTE [Suspect]
     Indication: POSTPARTUM DEPRESSION
     Dosage: 250 MG, 2 IN 1 D
     Dates: end: 20050301
  3. PILL [Concomitant]
  4. QUETIAPINE FUMARATE [Concomitant]

REACTIONS (11)
  - ABORTION SPONTANEOUS [None]
  - ALOPECIA [None]
  - DRUG EXPOSURE DURING PREGNANCY [None]
  - HIRSUTISM [None]
  - HYPERPLASIA [None]
  - HYPOTRICHOSIS [None]
  - MALAISE [None]
  - THROMBOCYTOPENIA [None]
  - UTERINE DISORDER [None]
  - VAGINAL HAEMORRHAGE [None]
  - VISUAL DISTURBANCE [None]
